FAERS Safety Report 7808100-0 (Version None)
Quarter: 2011Q4

REPORT INFORMATION
  Report Type: 
  Country: None (occurrence: None)
  Receive Date: 20111011
  Receipt Date: 20110926
  Transmission Date: 20120403
  Serious: Yes (Death)
  Sender: FDA-Public Use
  Company Number: CA-ROCHE-1000325

PATIENT
  Sex: Female
  Weight: 34.5 kg

DRUGS (16)
  1. COPEGUS [Suspect]
     Route: 048
     Dates: start: 20110725, end: 20110731
  2. SUBOXONE [Concomitant]
     Indication: DRUG DEPENDENCE
     Route: 060
  3. HYDROCORTISONE [Concomitant]
     Indication: DERMATITIS
     Route: 061
  4. COPEGUS [Suspect]
     Route: 048
     Dates: start: 20110801, end: 20110917
  5. VITAMIN D [Concomitant]
     Indication: PRODUCT USED FOR UNKNOWN INDICATION
     Route: 048
  6. ACETAMINOPHEN [Concomitant]
     Indication: MYALGIA
     Route: 048
  7. PEG-INTERFERON ALFA 2A [Suspect]
     Indication: HEPATITIS C
     Route: 058
     Dates: start: 20110629, end: 20110914
  8. CITALOPRAM HYDROBROMIDE [Concomitant]
     Indication: DYSTHYMIC DISORDER
     Route: 048
  9. CITALOPRAM HYDROBROMIDE [Concomitant]
     Indication: PREMENSTRUAL SYNDROME
  10. HYDROXYZINE [Concomitant]
     Indication: PRURITUS
     Route: 048
  11. BUPRENORPHINE [Concomitant]
     Indication: DRUG DEPENDENCE
     Route: 060
  12. ALBUTEROL [Concomitant]
     Indication: PRODUCT USED FOR UNKNOWN INDICATION
  13. QUETIAPINE FUMARATE [Concomitant]
     Indication: INSOMNIA
     Route: 048
  14. COPEGUS [Suspect]
     Indication: HEPATITIS C
     Route: 048
     Dates: start: 20110629, end: 20110717
  15. TMC435 (NS3/4A PROTEASE INHIBITOR) [Suspect]
     Indication: HEPATITIS C
     Route: 048
     Dates: start: 20110630, end: 20110920
  16. SUBOXONE [Concomitant]
     Indication: MYALGIA

REACTIONS (3)
  - PNEUMONIA [None]
  - SEPTIC SHOCK [None]
  - BRADYCARDIA [None]
